FAERS Safety Report 9824689 (Version 3)
Quarter: 2015Q4

REPORT INFORMATION
  Report Type: Report from Study
  Country: US (occurrence: US)
  Receive Date: 20140117
  Receipt Date: 20151105
  Transmission Date: 20160305
  Serious: Yes (Other)
  Sender: FDA-Public Use
  Company Number: US-ROCHE-1268535

PATIENT
  Sex: Male

DRUGS (6)
  1. LUCENTIS [Suspect]
     Active Substance: RANIBIZUMAB
     Indication: RETINAL VEIN OCCLUSION
     Dosage: RIGHT EYE
     Route: 050
     Dates: start: 20130718
  2. TROPICAMIDE. [Concomitant]
     Active Substance: TROPICAMIDE
     Route: 065
  3. PROPARACAINE [Concomitant]
     Active Substance: PROPARACAINE
     Route: 065
  4. LUCENTIS [Suspect]
     Active Substance: RANIBIZUMAB
     Indication: RETINAL OEDEMA
     Dosage: RIGHT EYE
     Route: 050
     Dates: start: 20131024, end: 20131024
  5. LUCENTIS [Suspect]
     Active Substance: RANIBIZUMAB
     Indication: CYSTOID MACULAR OEDEMA
  6. PHENYLEPHRINE [Concomitant]
     Active Substance: PHENYLEPHRINE\PHENYLEPHRINE HYDROCHLORIDE
     Route: 065

REACTIONS (9)
  - Vitreous haemorrhage [Unknown]
  - Lymphoma [Unknown]
  - Fatigue [Unknown]
  - Vision blurred [Not Recovered/Not Resolved]
  - Hot flush [Unknown]
  - Leukaemia [Unknown]
  - Feeling cold [Unknown]
  - Nausea [Unknown]
  - White blood cell count increased [Unknown]
